FAERS Safety Report 15514937 (Version 2)
Quarter: 2018Q4

REPORT INFORMATION
  Report Type: Spontaneous
  Country: RU (occurrence: RU)
  Receive Date: 20181017
  Receipt Date: 20181102
  Transmission Date: 20190205
  Serious: Yes (Other)
  Sender: FDA-Public Use
  Company Number: RU-IPSEN BIOPHARMACEUTICALS, INC.-2018-14692

PATIENT
  Sex: Female

DRUGS (3)
  1. DYSPORT [Suspect]
     Active Substance: ABOBOTULINUMTOXINA
     Indication: MUSCLE TONE DISORDER
     Dosage: 1000 IU FOR TORTICOLLIS AND 500 IU FOR MUSCULAR-TONIC SYNDROME.
     Route: 030
     Dates: start: 20180525, end: 20180525
  2. DYSPORT [Suspect]
     Active Substance: ABOBOTULINUMTOXINA
     Indication: TORTICOLLIS
     Dosage: 1500 UNITS (1000 UNITS FOR WRYNECK AND 500 UNITS FOR MUSCULAR TONIC SYNDROME
     Route: 030
     Dates: start: 20180906, end: 20180906
  3. DYSPORT [Suspect]
     Active Substance: ABOBOTULINUMTOXINA
     Indication: TORTICOLLIS

REACTIONS (5)
  - Injection site pain [Recovered/Resolved]
  - Myalgia [Recovered/Resolved]
  - Oedema [Recovered/Resolved]
  - Localised oedema [Recovered/Resolved]
  - Asthenia [Recovered/Resolved]

NARRATIVE: CASE EVENT DATE: 201809
